FAERS Safety Report 5338448-3 (Version None)
Quarter: 2007Q2

REPORT INFORMATION
  Report Type: 
  Country: None (occurrence: None)
  Receive Date: 20070530
  Receipt Date: 20070523
  Transmission Date: 20071010
  Serious: No
  Sender: FDA-Public Use
  Company Number: DE-ELI_LILLY_AND_COMPANY-DE200705006383

PATIENT
  Age: 44 Year
  Sex: Male

DRUGS (1)
  1. CIALIS [Suspect]
     Indication: ERECTILE DYSFUNCTION
     Dosage: UNK, AS NEEDED
     Route: 048
     Dates: start: 20061201, end: 20070523

REACTIONS (4)
  - ERYTHEMA [None]
  - HEADACHE [None]
  - SPERM COUNT DECREASED [None]
  - VISUAL DISTURBANCE [None]
